FAERS Safety Report 18241799 (Version 1)
Quarter: 2020Q3

REPORT INFORMATION
  Report Type: Spontaneous
  Country: US (occurrence: US)
  Receive Date: 20200907
  Receipt Date: 20200907
  Transmission Date: 20201103
  Serious: No
  Sender: FDA-Public Use
  Company Number: None

PATIENT
  Age: 37 Year
  Sex: Female
  Weight: 84.15 kg

DRUGS (5)
  1. CYTOMEL [Concomitant]
     Active Substance: LIOTHYRONINE SODIUM
  2. SYNTHROID [Concomitant]
     Active Substance: LEVOTHYROXINE SODIUM
  3. PRENATAL VITAMIN [Concomitant]
     Active Substance: VITAMINS
  4. MAGNESIUM [Concomitant]
     Active Substance: MAGNESIUM
  5. SAXENDA [Suspect]
     Active Substance: LIRAGLUTIDE
     Indication: WEIGHT DECREASED
     Dosage: QUANTITY:1 INJECTION(S);?
     Route: 030
     Dates: start: 20200830, end: 20200905

REACTIONS (3)
  - Back pain [None]
  - Gait inability [None]
  - Skin exfoliation [None]

NARRATIVE: CASE EVENT DATE: 20200903
